FAERS Safety Report 7388928-4 (Version None)
Quarter: 2011Q2

REPORT INFORMATION
  Report Type: 
  Country: None (occurrence: None)
  Receive Date: 20110401
  Receipt Date: 20110324
  Transmission Date: 20111010
  Serious: Yes (Hospitalization, Other)
  Sender: FDA-Public Use
  Company Number: FR-PFIZER INC-2011065295

PATIENT
  Age: 77 Year
  Sex: Male

DRUGS (7)
  1. CORTANCYL [Concomitant]
     Dosage: 5 MG, 1X/DAY
     Route: 048
  2. DEBRIDAT ^IBRAHIM^ [Concomitant]
     Dosage: 1 DF, 1X/DAY
     Route: 048
  3. LESCOL [Concomitant]
     Dosage: 40 MG, 1X/DAY
     Route: 048
  4. TENORMIN [Concomitant]
     Dosage: 25 MG, 1X/DAY
     Route: 048
  5. RAPAMUNE [Suspect]
     Indication: RENAL TRANSPLANT
     Dosage: 2 MG, 1X/DAY
     Route: 048
     Dates: start: 20060101
  6. NEXIUM [Concomitant]
     Dosage: 20 MG, 1X/DAY
     Route: 048
  7. MEDIATENSYL [Concomitant]
     Dosage: 30 MG, 2X/DAY
     Route: 048

REACTIONS (9)
  - DEEP VEIN THROMBOSIS [None]
  - BUNDLE BRANCH BLOCK LEFT [None]
  - PNEUMONIA BACTERIAL [None]
  - RENAL IMPAIRMENT [None]
  - DIVERTICULUM [None]
  - CYTOMEGALOVIRUS INFECTION [None]
  - HYPERTENSION [None]
  - HAEMORRHOIDS [None]
  - COLON POLYPECTOMY [None]
